FAERS Safety Report 14519795 (Version 4)
Quarter: 2018Q2

REPORT INFORMATION
  Report Type: Spontaneous
  Country: US (occurrence: US)
  Receive Date: 20180212
  Receipt Date: 20180508
  Transmission Date: 20180711
  Serious: No
  Sender: FDA-Public Use
  Company Number: US-ASTRAZENECA-2018SE18494

PATIENT
  Age: 1074 Month
  Sex: Male
  Weight: 76.2 kg

DRUGS (12)
  1. BYDUREON BCISE [Suspect]
     Active Substance: EXENATIDE
     Indication: TYPE 2 DIABETES MELLITUS
     Route: 058
  2. LEVOTHYROXINE. [Concomitant]
     Active Substance: LEVOTHYROXINE
     Indication: HYPOTHYROIDISM
     Dosage: 0.75 DAILY
     Route: 048
  3. IRON [Concomitant]
     Active Substance: IRON
     Indication: ANAEMIA
     Route: 048
  4. ATORVASTATIN [Concomitant]
     Active Substance: ATORVASTATIN
     Indication: BLOOD CHOLESTEROL ABNORMAL
     Route: 048
     Dates: start: 1994
  5. ASPIRIN. [Concomitant]
     Active Substance: ASPIRIN
     Indication: CARDIAC DISORDER
     Route: 048
  6. LANTUS [Concomitant]
     Active Substance: INSULIN GLARGINE
     Dosage: 7 IU (GRADUATED UP FROM 2 IU) AT NIGHT
     Route: 058
  7. STARLIX [Concomitant]
     Active Substance: NATEGLINIDE
     Dosage: 60 MG BEFORE BREAKFAST AND 120 MG BEFORE LUNCH AND DINNER
     Route: 048
  8. BYETTA [Suspect]
     Active Substance: EXENATIDE
     Indication: TYPE 2 DIABETES MELLITUS
     Route: 058
     Dates: end: 201711
  9. BYETTA [Suspect]
     Active Substance: EXENATIDE
     Indication: TYPE 2 DIABETES MELLITUS
     Dosage: 10.0UG UNKNOWN
     Route: 058
  10. METOPROLOL. [Suspect]
     Active Substance: METOPROLOL
     Indication: CARDIAC DISORDER
     Route: 048
  11. BYDUREON [Suspect]
     Active Substance: EXENATIDE
     Indication: TYPE 2 DIABETES MELLITUS
     Route: 058
  12. TRAJENTA [Concomitant]
     Active Substance: LINAGLIPTIN
     Dosage: 5 MG EVERY MORNING BY MOUTH
     Route: 048

REACTIONS (9)
  - Device leakage [Unknown]
  - Chronic kidney disease [Not Recovered/Not Resolved]
  - Blood glucose increased [Recovered/Resolved]
  - Hypoacusis [Unknown]
  - Device malfunction [Unknown]
  - Discomfort [Unknown]
  - Blood creatinine increased [Unknown]
  - Circumstance or information capable of leading to medication error [Unknown]
  - Macular degeneration [Unknown]

NARRATIVE: CASE EVENT DATE: 201711
